FAERS Safety Report 16387880 (Version 1)
Quarter: 2019Q2

REPORT INFORMATION
  Report Type: Spontaneous
  Country: US (occurrence: US)
  Receive Date: 20190604
  Receipt Date: 20190604
  Transmission Date: 20190711
  Serious: No
  Sender: FDA-Public Use
  Company Number: US-BAYER-2019-107059

PATIENT
  Sex: Male

DRUGS (1)
  1. ALEVE BACK AND MUSCLE PAIN [Suspect]
     Active Substance: NAPROXEN SODIUM

REACTIONS (4)
  - Pruritus [Unknown]
  - Urticaria [Unknown]
  - Drug ineffective [Unknown]
  - Drug hypersensitivity [Unknown]
